FAERS Safety Report 17346304 (Version 1)
Quarter: 2020Q1

REPORT INFORMATION
  Report Type: Spontaneous
  Country: US (occurrence: US)
  Receive Date: 20200124
  Receipt Date: 20200124
  Transmission Date: 20200409
  Serious: Yes (Hospitalization)
  Sender: FDA-Public Use
  Company Number: None

PATIENT
  Age: 61 Year
  Sex: Male
  Weight: 83.01 kg

DRUGS (2)
  1. WARFARIN (WARFARIN NA 5MG TAB, UD) [Suspect]
     Active Substance: WARFARIN SODIUM
     Indication: VENOUS OCCLUSION
     Route: 048
     Dates: start: 20191113, end: 20191115
  2. HEPARIN (HEPARIN CA 25000UNT/ML INJ) [Suspect]
     Active Substance: HEPARIN CALCIUM
     Indication: VENOUS OCCLUSION
     Route: 042
     Dates: start: 20191113, end: 20191115

REACTIONS (2)
  - Catheter site haemorrhage [None]
  - Epistaxis [None]

NARRATIVE: CASE EVENT DATE: 20191115
